FAERS Safety Report 23044132 (Version 1)
Quarter: 2023Q4

REPORT INFORMATION
  Report Type: Spontaneous
  Country: CN (occurrence: None)
  Receive Date: 20231009
  Receipt Date: 20231009
  Transmission Date: 20240110
  Serious: Yes (Other)
  Sender: FDA-Public Use
  Company Number: 2023A227407

PATIENT
  Age: 27393 Day
  Sex: Female
  Weight: 39 kg

DRUGS (1)
  1. OSIMERTINIB MESYLATE [Suspect]
     Active Substance: OSIMERTINIB MESYLATE
     Indication: Chemotherapy
     Route: 048
     Dates: start: 20230511, end: 20231001

REACTIONS (3)
  - Anaemia [Recovering/Resolving]
  - Myelosuppression [Unknown]
  - Condition aggravated [Unknown]

NARRATIVE: CASE EVENT DATE: 20230905
